FAERS Safety Report 6249992-9 (Version None)
Quarter: 2009Q2

REPORT INFORMATION
  Report Type: 
  Country: None (occurrence: None)
  Receive Date: 20090629
  Receipt Date: 20090624
  Transmission Date: 20091009
  Serious: Yes (Hospitalization)
  Sender: FDA-Public Use
  Company Number: US-ABBOTT-09P-163-0581626-00

PATIENT
  Sex: Male
  Weight: 72.64 kg

DRUGS (3)
  1. KALETRA [Suspect]
     Indication: HIV INFECTION
     Dates: start: 20090201
  2. LISINOPRIL [Suspect]
     Indication: HYPERTENSION
     Dates: start: 20090201, end: 20090201
  3. TRUVADA [Concomitant]
     Indication: DRUG USE FOR UNKNOWN INDICATION

REACTIONS (5)
  - ABDOMINAL DISCOMFORT [None]
  - DIARRHOEA [None]
  - HYPERTENSION [None]
  - LIP SWELLING [None]
  - SWELLING FACE [None]
